FAERS Safety Report 7944447-5 (Version None)
Quarter: 2011Q4

REPORT INFORMATION
  Report Type: 
  Country: None (occurrence: None)
  Receive Date: 20111129
  Receipt Date: 20111116
  Transmission Date: 20120403
  Serious: Yes (Other)
  Sender: FDA-Public Use
  Company Number: AT-AMGEN-AUTSP2011061588

PATIENT
  Age: 41 Year
  Sex: Female

DRUGS (5)
  1. CALCIUM CARBONATE [Concomitant]
     Indication: PROPHYLAXIS
     Dosage: UNK
     Route: 048
  2. URBASON                            /00049601/ [Concomitant]
     Indication: POLYARTHRITIS
     Dosage: 4 MG, UNK
     Route: 048
  3. ENBREL [Suspect]
     Indication: PRODUCT USED FOR UNKNOWN INDICATION
     Dosage: 50 MG, WEEKLY
     Route: 058
     Dates: start: 20100806, end: 20111028
  4. ASPIRIN [Concomitant]
     Dosage: 100 MG, UNK
     Route: 048
  5. EBETREXAT                          /00113801/ [Concomitant]
     Indication: POLYARTHRITIS
     Dosage: 10 MG, WEEKLY
     Route: 048

REACTIONS (2)
  - LIMB CRUSHING INJURY [None]
  - ROAD TRAFFIC ACCIDENT [None]
